FAERS Safety Report 9078201 (Version 1)
Quarter: 2013Q1

REPORT INFORMATION
  Report Type: Report from Study
  Country: US (occurrence: US)
  Receive Date: 20130130
  Receipt Date: 20130130
  Transmission Date: 20140127
  Serious: No
  Sender: FDA-Public Use
  Company Number: US-ABBOTT-12P-163-0962341-00

PATIENT
  Sex: Female
  Weight: 79.45 kg

DRUGS (10)
  1. HUMIRA 40 MG/ 0.8 ML PRE-FILLED SYRINGE [Suspect]
     Indication: RHEUMATOID ARTHRITIS
     Route: 058
     Dates: end: 201101
  2. HUMIRA 40 MG/ 0.8 ML PRE-FILLED SYRINGE [Suspect]
     Route: 058
     Dates: start: 201101, end: 201201
  3. HUMIRA 40 MG/ 0.8 ML PRE-FILLED SYRINGE [Suspect]
     Route: 058
  4. LEVORA [Concomitant]
     Indication: CONTRACEPTION
  5. UNNAMED MEDICATION [Concomitant]
     Indication: FIBROMYALGIA
  6. METHOTREXATE [Concomitant]
     Indication: RHEUMATOID ARTHRITIS
  7. SULFASALAZINE [Concomitant]
     Indication: RHEUMATOID ARTHRITIS
  8. NAPROXEN [Concomitant]
     Indication: RHEUMATOID ARTHRITIS
  9. UNNAMED MEDICATION [Concomitant]
     Indication: HYPERTONIC BLADDER
  10. CYCLOBENZAPRINE [Concomitant]
     Indication: RHEUMATOID ARTHRITIS

REACTIONS (3)
  - Drug ineffective [Not Recovered/Not Resolved]
  - Pain [Not Recovered/Not Resolved]
  - Rheumatoid arthritis [Not Recovered/Not Resolved]
